FAERS Safety Report 14304969 (Version 1)
Quarter: 2017Q4

REPORT INFORMATION
  Report Type: Spontaneous
  Country: US (occurrence: US)
  Receive Date: 20171219
  Receipt Date: 20171219
  Transmission Date: 20180321
  Serious: Yes (Hospitalization, Other)
  Sender: FDA-Public Use
  Company Number: US-INDIVIOR LIMITED-INDV-106969-2017

PATIENT
  Sex: Male

DRUGS (1)
  1. SUBOXONE [Suspect]
     Active Substance: BUPRENORPHINE HYDROCHLORIDE\NALOXONE HYDROCHLORIDE
     Indication: DRUG DEPENDENCE
     Dosage: UNK
     Route: 065

REACTIONS (11)
  - Overdose [Unknown]
  - Depression [Unknown]
  - Road traffic accident [Recovered/Resolved]
  - Attention deficit/hyperactivity disorder [Unknown]
  - Loss of consciousness [Recovered/Resolved]
  - Panic disorder [Unknown]
  - Drug detoxification [Unknown]
  - Bipolar disorder [Unknown]
  - Social anxiety disorder [Unknown]
  - Drug dependence [Unknown]
  - Impaired driving ability [Unknown]

NARRATIVE: CASE EVENT DATE: 20100315
